FAERS Safety Report 5085421-9 (Version None)
Quarter: 2006Q3

REPORT INFORMATION
  Report Type: 
  Country: None (occurrence: None)
  Receive Date: 20060817
  Receipt Date: 20060803
  Transmission Date: 20061208
  Serious: Yes (Hospitalization, Other)
  Sender: FDA-Public Use
  Company Number: 2006096432

PATIENT
  Age: 60 Year
  Sex: Male
  Weight: 74.8435 kg

DRUGS (3)
  1. BEXTRA [Suspect]
     Indication: ARTHRALGIA
     Dosage: 10 OR 20 MG (1 IN 1 D), ORAL
     Route: 048
     Dates: start: 20030301, end: 20030619
  2. BEXTRA [Suspect]
     Indication: BACK PAIN
     Dosage: 10 OR 20 MG (1 IN 1 D), ORAL
     Route: 048
     Dates: start: 20030301, end: 20030619
  3. BEXTRA [Suspect]
     Indication: NECK PAIN
     Dosage: 10 OR 20 MG (1 IN 1 D), ORAL
     Route: 048
     Dates: start: 20030301, end: 20030619

REACTIONS (5)
  - ANGINA UNSTABLE [None]
  - CARDIAC DISORDER [None]
  - CONDITION AGGRAVATED [None]
  - CORONARY ARTERY OCCLUSION [None]
  - EYE DISORDER [None]
